FAERS Safety Report 13155054 (Version 1)
Quarter: 2017Q1

REPORT INFORMATION
  Report Type: Spontaneous
  Country: GB (occurrence: GB)
  Receive Date: 20170126
  Receipt Date: 20170126
  Transmission Date: 20170428
  Serious: Yes (Disabling, Other)
  Sender: FDA-Public Use
  Company Number: GB-PFIZER INC-2017025790

PATIENT
  Age: 12 Year
  Sex: Female

DRUGS (1)
  1. CIPROFLOXACIN HCL [Suspect]
     Active Substance: CIPROFLOXACIN HYDROCHLORIDE
     Dosage: 620 MG, 2X/DAY
     Route: 048

REACTIONS (2)
  - Papule [Not Recovered/Not Resolved]
  - Rash [Not Recovered/Not Resolved]
